FAERS Safety Report 10063011 (Version 1)
Quarter: 2014Q2

REPORT INFORMATION
  Report Type: Spontaneous
  Country: CA (occurrence: CA)
  Receive Date: 20140407
  Receipt Date: 20140407
  Transmission Date: 20141212
  Serious: Yes (Other)
  Sender: FDA-Public Use
  Company Number: CA-BRISTOL-MYERS SQUIBB COMPANY-20566659

PATIENT
  Sex: 0

DRUGS (10)
  1. ELIQUIS [Suspect]
     Indication: ATRIAL FIBRILLATION
     Dates: start: 20130514
  2. CISPLATIN [Suspect]
     Indication: CHEMOTHERAPY
     Route: 042
     Dates: start: 20130529
  3. PEMETREXED DISODIUM [Suspect]
     Indication: CHEMOTHERAPY
     Route: 042
     Dates: start: 20130529
  4. ATIVAN S.L. [Concomitant]
     Indication: ATRIAL FIBRILLATION
     Dosage: PER 4 HRS
     Route: 060
  5. TUSSIONEX [Concomitant]
     Dosage: 2 PER DAY
  6. RAMIPRIL [Concomitant]
  7. PANTOLOC [Concomitant]
  8. LIPITOR [Concomitant]
  9. ALLOPURINOL [Concomitant]
  10. BISOPROLOL [Concomitant]

REACTIONS (1)
  - Neutropenia [Unknown]
